FAERS Safety Report 21939326 (Version 1)
Quarter: 2023Q1

REPORT INFORMATION
  Report Type: Spontaneous
  Country: US (occurrence: US)
  Receive Date: 20230201
  Receipt Date: 20230201
  Transmission Date: 20230418
  Serious: No
  Sender: FDA-Public Use
  Company Number: US-ABBVIE-4244243

PATIENT
  Sex: Male
  Weight: 88 kg

DRUGS (2)
  1. SYNTHROID [Suspect]
     Active Substance: LEVOTHYROXINE SODIUM
     Indication: Product used for unknown indication
     Dosage: 0.175 MICROGRAM
     Route: 048
  2. LEVOXYL [Suspect]
     Active Substance: LEVOTHYROXINE SODIUM
     Indication: Product used for unknown indication
     Dosage: 175 MCG
     Route: 065

REACTIONS (4)
  - Gastric disorder [Unknown]
  - Dyspepsia [Unknown]
  - Gastroenteritis viral [Unknown]
  - General physical condition abnormal [Unknown]
